FAERS Safety Report 10257369 (Version 6)
Quarter: 2014Q4

REPORT INFORMATION
  Report Type: Spontaneous
  Country: CA (occurrence: CA)
  Receive Date: 20140625
  Receipt Date: 20141020
  Transmission Date: 20150528
  Serious: Yes (Other)
  Sender: FDA-Public Use
  Company Number: CA-ROCHE-1423758

PATIENT
  Age: 30 Year
  Sex: Female

DRUGS (2)
  1. XOLAIR [Suspect]
     Active Substance: OMALIZUMAB
     Indication: ASTHMA
     Route: 058
     Dates: start: 20140612, end: 20140612
  2. XOLAIR [Suspect]
     Active Substance: OMALIZUMAB
     Route: 058
     Dates: start: 20141007

REACTIONS (15)
  - Suffocation feeling [Unknown]
  - Pruritus [Unknown]
  - Blood immunoglobulin E increased [Unknown]
  - Confusional state [Unknown]
  - Limb injury [Unknown]
  - Loss of consciousness [Unknown]
  - Asthma [Not Recovered/Not Resolved]
  - Pulmonary function test decreased [Unknown]
  - Arthralgia [Unknown]
  - Insomnia [Unknown]
  - Hypoaesthesia [Unknown]
  - Headache [Unknown]
  - Abasia [Unknown]
  - Urticaria [Unknown]
  - Rash [Unknown]

NARRATIVE: CASE EVENT DATE: 20140612
